FAERS Safety Report 12055641 (Version 3)
Quarter: 2016Q2

REPORT INFORMATION
  Report Type: Spontaneous
  Country: US (occurrence: US)
  Receive Date: 20160209
  Receipt Date: 20160405
  Transmission Date: 20160815
  Serious: Yes (Life-Threatening, Hospitalization, Disabling)
  Sender: FDA-Public Use
  Company Number: US-JNJFOC-20160201206

PATIENT
  Age: 50 Year
  Sex: Female

DRUGS (9)
  1. AMBIEN [Concomitant]
     Active Substance: ZOLPIDEM TARTRATE
     Route: 065
  2. STELARA [Suspect]
     Active Substance: USTEKINUMAB
     Indication: PSORIASIS
     Dosage: 3 DOSES
     Route: 058
     Dates: start: 20150429, end: 20151028
  3. FISH OIL [Concomitant]
     Active Substance: FISH OIL
     Route: 065
  4. VITAMIN E [Concomitant]
     Active Substance: .ALPHA.-TOCOPHEROL
     Route: 065
  5. SEROQUEL [Concomitant]
     Active Substance: QUETIAPINE FUMARATE
     Route: 065
  6. CRESTOR [Suspect]
     Active Substance: ROSUVASTATIN CALCIUM
     Indication: HYPERCHOLESTEROLAEMIA
     Route: 048
  7. METOPROLOL. [Concomitant]
     Active Substance: METOPROLOL
     Route: 065
  8. EFFEXOR [Concomitant]
     Active Substance: VENLAFAXINE HYDROCHLORIDE
     Route: 065
  9. REMERON [Concomitant]
     Active Substance: MIRTAZAPINE
     Route: 065

REACTIONS (7)
  - Acute kidney injury [Recovering/Resolving]
  - Myalgia [Unknown]
  - Weight decreased [Unknown]
  - Blood creatine phosphokinase increased [Recovering/Resolving]
  - Rhabdomyolysis [Recovering/Resolving]
  - Drug ineffective [Unknown]
  - Muscular weakness [Unknown]

NARRATIVE: CASE EVENT DATE: 2015
